FAERS Safety Report 8864631 (Version 1)
Quarter: 2012Q4

REPORT INFORMATION
  Report Type: 
  Country: US (occurrence: US)
  Receive Date: 20121024
  Receipt Date: 20121024
  Transmission Date: 20130627
  Serious: No
  Sender: FDA-Public Use
  Company Number: US-AMGEN-USASP2011068246

PATIENT
  Age: 52 Year
  Sex: Female
  Weight: 61.22 kg

DRUGS (6)
  1. ENBREL [Suspect]
     Indication: PSORIATIC ARTHROPATHY
     Dosage: 50 mg, qwk
     Route: 058
  2. METHOTREXATE [Concomitant]
     Dosage: 2.5 mg, UNK
     Route: 048
  3. ORTHO-NOVUM [Concomitant]
     Dosage: 1/35-28
     Route: 048
  4. CLOBETASOL [Concomitant]
     Dosage: 0.05 UNK, UNK
  5. FOLIC ACID [Concomitant]
     Dosage: 1 mg, UNK
     Route: 048
  6. MULTI TABS [Concomitant]
     Route: 048

REACTIONS (1)
  - Nasopharyngitis [Unknown]
